FAERS Safety Report 9742820 (Version 2)
Quarter: 2013Q4

REPORT INFORMATION
  Report Type: Spontaneous
  Country: JP (occurrence: JP)
  Receive Date: 20131210
  Receipt Date: 20131226
  Transmission Date: 20140711
  Serious: Yes (Life-Threatening, Hospitalization)
  Sender: FDA-Public Use
  Company Number: JP-AMGEN-JPNSP2013086495

PATIENT
  Age: 61 Year
  Sex: Male
  Weight: 65 kg

DRUGS (13)
  1. VECTIBIX [Suspect]
     Indication: COLON CANCER
     Dosage: 380 MG, Q2WK
     Route: 041
     Dates: start: 20131127
  2. TAKEPRON [Concomitant]
     Dosage: 15 MG, QD
     Route: 048
     Dates: start: 20130213
  3. LOXOPROFEN SODIUM [Concomitant]
     Dosage: 60 MG, TID
     Route: 048
     Dates: start: 20130213
  4. TRAMCET [Concomitant]
     Dosage: 1 DF, UNK
     Route: 048
     Dates: start: 20130213
  5. OXYCONTIN [Concomitant]
     Dosage: 10 MG, BID
     Route: 048
     Dates: start: 20130417
  6. LYRICA [Concomitant]
     Dosage: 75 MG, BID
     Route: 048
     Dates: start: 20130417
  7. REBAMIPIDE [Concomitant]
     Dosage: 100 MG, TID
     Route: 048
     Dates: start: 20130213
  8. CLARITHROMYCIN [Concomitant]
     Dosage: 200 MG, BID
     Route: 048
     Dates: start: 20131127
  9. HIRUDOID                           /00723701/ [Concomitant]
     Dosage: UNK
     Route: 062
     Dates: start: 20131127
  10. LOCOID [Concomitant]
     Dosage: UNK
     Route: 062
     Dates: start: 20131127
  11. OXINORM                            /00045603/ [Concomitant]
     Dosage: 2.5 MG, UNK
     Route: 048
     Dates: start: 20131106
  12. IRINOTECAN HYDROCHLORIDE [Concomitant]
     Indication: COLON CANCER
     Dosage: UNK UNK, Q2WK
     Route: 041
     Dates: start: 20131127
  13. CYTOTEC [Concomitant]
     Dosage: 200 MUG, TID
     Route: 048
     Dates: start: 20130213

REACTIONS (1)
  - Infusion related reaction [Recovered/Resolved]
